FAERS Safety Report 5047236-7 (Version None)
Quarter: 2006Q3

REPORT INFORMATION
  Report Type: 
  Country: None (occurrence: None)
  Receive Date: 20060703
  Receipt Date: 20060617
  Transmission Date: 20061208
  Serious: Yes (Hospitalization)
  Sender: FDA-Public Use
  Company Number: 2006PV015091

PATIENT
  Age: 49 Year
  Sex: Male
  Weight: 117.9352 kg

DRUGS (5)
  1. BYETTA [Suspect]
     Indication: DIABETES MELLITUS NON-INSULIN-DEPENDENT
     Dosage: 5 MCG; BID; SC
     Route: 058
     Dates: start: 20060519, end: 20060605
  2. METFORMIN [Concomitant]
  3. OMEPRAZOLE [Concomitant]
  4. CRESTOR [Concomitant]
  5. ACE INHIBITOR NOS [Concomitant]

REACTIONS (6)
  - ABDOMINAL DISTENSION [None]
  - CHEST PAIN [None]
  - CONSTIPATION [None]
  - CORONARY ARTERY OCCLUSION [None]
  - DYSPNOEA [None]
  - NAUSEA [None]
